FAERS Safety Report 7915182-4 (Version None)
Quarter: 2011Q4

REPORT INFORMATION
  Report Type: 
  Country: None (occurrence: None)
  Receive Date: 20111115
  Receipt Date: 20111104
  Transmission Date: 20120403
  Serious: Yes (Other)
  Sender: FDA-Public Use
  Company Number: US-JNJFOC-20111006784

PATIENT
  Sex: Female
  Weight: 83.92 kg

DRUGS (5)
  1. REMICADE [Suspect]
     Indication: COLITIS ULCERATIVE
     Route: 042
     Dates: start: 20050101
  2. DIOVAN [Suspect]
     Indication: HYPERTENSION
     Route: 048
     Dates: start: 19950101, end: 20090101
  3. ESTRADIOL [Concomitant]
     Indication: HORMONE REPLACEMENT THERAPY
  4. PROZAC [Concomitant]
     Indication: DEPRESSION
     Dosage: 20MG/CAPSULE/20MG/IN24HOURS
     Route: 048
     Dates: start: 20010101
  5. VITAMIN D [Concomitant]
     Indication: NUTRITIONAL SUPPORT
     Dosage: 1000MG/U/1000MG/IN 24HOURS
     Route: 048

REACTIONS (3)
  - HYPERTENSION [None]
  - TYPE 2 DIABETES MELLITUS [None]
  - HYPERCHOLESTEROLAEMIA [None]
